FAERS Safety Report 8963047 (Version 2)
Quarter: 2013Q1

REPORT INFORMATION
  Report Type: Spontaneous
  Country: US (occurrence: US)
  Receive Date: 20121214
  Receipt Date: 20130201
  Transmission Date: 20140127
  Serious: Yes (Other)
  Sender: FDA-Public Use
  Company Number: US-BAYER-2012-128447

PATIENT
  Age: 27 Year
  Sex: Female
  Weight: 49.89 kg

DRUGS (2)
  1. MIRENA [Suspect]
     Indication: CONTRACEPTION
     Dosage: 20 MCG/24HR, CONT
     Route: 015
     Dates: start: 20121113, end: 20121204
  2. LEXAPRO [Concomitant]
     Dosage: 10 MG, TID
     Dates: start: 201110

REACTIONS (5)
  - Post procedural haemorrhage [Recovered/Resolved]
  - Genital haemorrhage [None]
  - Device issue [Recovered/Resolved]
  - Device expulsion [Recovered/Resolved]
  - Abdominal pain lower [Recovered/Resolved]
